FAERS Safety Report 13903717 (Version 5)
Quarter: 2017Q4

REPORT INFORMATION
  Report Type: Report from Study
  Country: US (occurrence: US)
  Receive Date: 20170824
  Receipt Date: 20171130
  Transmission Date: 20180320
  Serious: Yes (Hospitalization)
  Sender: FDA-Public Use
  Company Number: US-ACTELION-A-NJ2017-149582

PATIENT
  Age: 78 Year
  Sex: Female
  Weight: 70.75 kg

DRUGS (10)
  1. AMLODIPINE [Concomitant]
     Active Substance: AMLODIPINE BESYLATE
  2. LIPITOR [Concomitant]
     Active Substance: ATORVASTATIN CALCIUM
     Dosage: 10 MG, QD
     Route: 048
  3. MAGNESIUM OXIDE. [Concomitant]
     Active Substance: MAGNESIUM OXIDE
     Dosage: 400 MG, QD
     Route: 048
  4. METAMUCIL [Concomitant]
     Active Substance: PLANTAGO SEED
  5. TOPROL XL [Concomitant]
     Active Substance: METOPROLOL SUCCINATE
     Dosage: 25 MG, QD
     Route: 048
  6. ADEMPAS [Suspect]
     Active Substance: RIOCIGUAT
     Indication: PRODUCT USED FOR UNKNOWN INDICATION
     Dosage: 1 MG, UNK
     Route: 065
  7. VITAMIN D3 [Concomitant]
     Active Substance: CHOLECALCIFEROL
     Dosage: 1000 U, QD
     Route: 048
  8. TOPROL XL [Concomitant]
     Active Substance: METOPROLOL SUCCINATE
     Dosage: 12.5 MG, QD
     Route: 048
  9. OPSUMIT [Suspect]
     Active Substance: MACITENTAN
     Indication: PULMONARY ARTERIAL HYPERTENSION
     Dosage: 10 MG, QD
     Route: 048
     Dates: start: 20170117
  10. GAVISCON [Concomitant]
     Active Substance: ALUMINUM HYDROXIDE\MAGNESIUM CARBONATE
     Dosage: UNK UNK, TID
     Route: 048

REACTIONS (36)
  - Dyspepsia [Not Recovered/Not Resolved]
  - Dyspnoea exertional [Unknown]
  - Dry mouth [Unknown]
  - Hypotension [Unknown]
  - Pulmonary hypertension [Unknown]
  - Lung disorder [Unknown]
  - Pulmonary vascular resistance abnormality [Unknown]
  - Urinary tract infection [Unknown]
  - Cardiac failure acute [Recovering/Resolving]
  - Headache [Recovered/Resolved]
  - Dyspnoea [Unknown]
  - Constipation [Recovering/Resolving]
  - Fatigue [Unknown]
  - Decreased appetite [Unknown]
  - Pericardial effusion [Unknown]
  - Gastrooesophageal reflux disease [Not Recovered/Not Resolved]
  - Intestinal obstruction [Recovering/Resolving]
  - Diarrhoea [Unknown]
  - Abdominal pain upper [Unknown]
  - Thirst [Unknown]
  - Fluid retention [Unknown]
  - Vomiting [Recovering/Resolving]
  - Joint swelling [Unknown]
  - Oedema [Unknown]
  - Palpitations [Unknown]
  - Seasonal allergy [Unknown]
  - Upper-airway cough syndrome [Unknown]
  - Cardiac output decreased [Unknown]
  - Nausea [Recovered/Resolved]
  - Dizziness [Unknown]
  - Blood sodium increased [Unknown]
  - Cardiomegaly [Unknown]
  - Back pain [Unknown]
  - Condition aggravated [Unknown]
  - Tooth disorder [Unknown]
  - Atrioventricular block [Unknown]

NARRATIVE: CASE EVENT DATE: 20170806
